FAERS Safety Report 6427201-5 (Version None)
Quarter: 2009Q4

REPORT INFORMATION
  Report Type: 
  Country: None (occurrence: None)
  Receive Date: 20091104
  Receipt Date: 20091023
  Transmission Date: 20100525
  Serious: Yes (Disabling)
  Sender: FDA-Public Use
  Company Number: CO-ELI_LILLY_AND_COMPANY-CO200910001946

PATIENT
  Age: 85 Year
  Sex: Female
  Weight: 37 kg

DRUGS (4)
  1. FORTEO [Suspect]
     Indication: OSTEOPOROSIS
     Dosage: 20 UG, UNKNOWN
     Route: 065
     Dates: start: 20080815
  2. OMEPRAZOLE [Concomitant]
     Indication: GASTRITIS
     Dosage: UNK, UNKNOWN
     Route: 065
  3. CALCIUM [Concomitant]
     Indication: OSTEOPOROSIS
     Dosage: UNK, UNKNOWN
     Route: 065
  4. TRAMADOL HCL [Concomitant]
     Indication: PAIN
     Dosage: UNK, UNKNOWN
     Route: 065

REACTIONS (4)
  - GAIT DISTURBANCE [None]
  - HYPERAESTHESIA [None]
  - MUSCLE SPASMS [None]
  - PAIN [None]
